FAERS Safety Report 7208125-2 (Version None)
Quarter: 2010Q4

REPORT INFORMATION
  Report Type: 
  Country: None (occurrence: None)
  Receive Date: 20101230
  Receipt Date: 20101230
  Transmission Date: 20110411
  Serious: Yes (Other)
  Sender: FDA-Public Use
  Company Number: None

PATIENT
  Age: 79 Year
  Sex: Male
  Weight: 106.1417 kg

DRUGS (1)
  1. LUMIGAN [Suspect]
     Indication: GLAUCOMA
     Dosage: 1 DROP LEFT EYE 1X/DAY
     Dates: start: 20090721, end: 20101202

REACTIONS (3)
  - DIZZINESS [None]
  - DYSPNOEA [None]
  - HEADACHE [None]
